FAERS Safety Report 15825651 (Version 2)
Quarter: 2019Q1

REPORT INFORMATION
  Report Type: Spontaneous
  Country: JP (occurrence: JP)
  Receive Date: 20190115
  Receipt Date: 20190220
  Transmission Date: 20190417
  Serious: Yes (Death, Hospitalization, Other)
  Sender: FDA-Public Use
  Company Number: JP-ELI_LILLY_AND_COMPANY-JP201901004358

PATIENT
  Age: 79 Year
  Sex: Male
  Weight: 43 kg

DRUGS (10)
  1. HUMALOG [Suspect]
     Active Substance: INSULIN LISPRO
     Dosage: 2 IU, TID
     Route: 058
     Dates: start: 20151119, end: 20170913
  2. HUMALOG [Suspect]
     Active Substance: INSULIN LISPRO
     Dosage: 7 IU, UNK
     Route: 058
     Dates: start: 20170914, end: 20180110
  3. MAGNESIUM OXIDE. [Concomitant]
     Active Substance: MAGNESIUM OXIDE
     Indication: CONSTIPATION
     Dosage: 250 MG, TID
     Route: 048
     Dates: start: 201406, end: 20150722
  4. JUVELA N [Concomitant]
     Active Substance: TOCOPHERYL NICOTINATE, D-.ALPHA.
     Indication: CARDIOVASCULAR DISORDER
     Dosage: 200 MG, TID
     Route: 048
     Dates: start: 20151224
  5. ADALAT [Concomitant]
     Active Substance: NIFEDIPINE
     Indication: HYPERTENSION
     Dosage: 40 MG, EACH MORNING
     Route: 048
     Dates: start: 20180517
  6. HUMALOG [Suspect]
     Active Substance: INSULIN LISPRO
     Indication: DIABETES MELLITUS
     Dosage: 2 IU, BID
     Route: 058
     Dates: start: 20140423, end: 20150819
  7. HUMALOG [Suspect]
     Active Substance: INSULIN LISPRO
     Dosage: 5 IU, UNK
     Route: 058
     Dates: start: 20150820, end: 20151118
  8. MAGNESIUM OXIDE. [Concomitant]
     Active Substance: MAGNESIUM OXIDE
     Dosage: 330 MG, TID
     Route: 048
     Dates: start: 20150723
  9. HUMALOG [Suspect]
     Active Substance: INSULIN LISPRO
     Dosage: 10 IU, UNK
     Route: 058
     Dates: start: 20180111
  10. KALIMATE [Concomitant]
     Active Substance: CALCIUM POLYSTYRENE SULFONATE
     Indication: HYPERKALAEMIA
     Dosage: 10.8 G, EACH MORNING
     Route: 048
     Dates: start: 20170202

REACTIONS (3)
  - Cellulitis [Unknown]
  - Coronary artery stenosis [Unknown]
  - Death [Fatal]

NARRATIVE: CASE EVENT DATE: 2018
